FAERS Safety Report 10079203 (Version 1)
Quarter: 2014Q2

REPORT INFORMATION
  Report Type: Spontaneous
  Country: BR (occurrence: BR)
  Receive Date: 20140415
  Receipt Date: 20140415
  Transmission Date: 20141212
  Serious: Yes (Hospitalization, Disabling)
  Sender: FDA-Public Use
  Company Number: BR-ASTRAZENECA-2014SE24878

PATIENT
  Age: 64 Year
  Sex: Male

DRUGS (9)
  1. ATENOL [Suspect]
     Indication: ARRHYTHMIA
     Route: 048
     Dates: start: 2010
  2. ATENOL [Suspect]
     Indication: ARRHYTHMIA
     Route: 048
     Dates: start: 2010
  3. ROSUVASTATIN [Suspect]
     Indication: BLOOD CHOLESTEROL INCREASED
     Dosage: DAILY
     Route: 048
     Dates: start: 20130820
  4. BRILINTA [Suspect]
     Route: 048
     Dates: start: 20130820
  5. METFORMIN (NON AZ) [Suspect]
     Indication: DIABETES MELLITUS
     Route: 048
  6. LOSARTAN POTASSIUM [Concomitant]
     Indication: HYPERTENSION
     Route: 048
     Dates: start: 2010
  7. ASPIRINA PREVENT [Concomitant]
     Route: 048
  8. MONOCORDIL [Concomitant]
     Route: 048
  9. INSULIN [Concomitant]
     Indication: DIABETES MELLITUS
     Route: 058

REACTIONS (7)
  - Chest pain [Recovering/Resolving]
  - Coronary artery occlusion [Recovered/Resolved]
  - Diabetic foot [Recovered/Resolved with Sequelae]
  - Diabetic eye disease [Recovered/Resolved]
  - Cerebrovascular accident [Recovered/Resolved]
  - Blindness [Not Recovered/Not Resolved]
  - Off label use [Not Recovered/Not Resolved]
